FAERS Safety Report 19514257 (Version 3)
Quarter: 2021Q3

REPORT INFORMATION
  Report Type: Report from Study
  Country: None (occurrence: US)
  Receive Date: 20210710
  Receipt Date: 20210810
  Transmission Date: 20211014
  Serious: Yes (Death, Hospitalization)
  Sender: FDA-Public Use
  Company Number: US-ABBVIE-20K-163-3677187-00

PATIENT
  Age: 62 Year
  Sex: Male
  Weight: 83.08 kg

DRUGS (4)
  1. PENTOSTATIN. [Concomitant]
     Active Substance: PENTOSTATIN
     Indication: T-CELL PROLYMPHOCYTIC LEUKAEMIA
     Dates: start: 20210303, end: 20210513
  2. VENCLEXTA [Suspect]
     Active Substance: VENETOCLAX
     Indication: NON-HODGKIN^S LYMPHOMA
     Dosage: TAKE 8 TABLETS BY MOUTH EVERY DAY
     Route: 048
  3. VENCLEXTA [Suspect]
     Active Substance: VENETOCLAX
     Indication: T-CELL PROLYMPHOCYTIC LEUKAEMIA
     Route: 048
     Dates: start: 20201103
  4. INTERLEUKIN?2 [Concomitant]
     Active Substance: ALDESLEUKIN
     Indication: IMMUNE SYSTEM DISORDER
     Dosage: 1 SHOT DAILY FOR 2 WEEKS AT A TIME
     Dates: start: 20201020

REACTIONS (4)
  - Pleural effusion [Recovered/Resolved]
  - Death [Fatal]
  - Intra-abdominal fluid collection [Recovered/Resolved]
  - Off label use [Unknown]

NARRATIVE: CASE EVENT DATE: 20210613
